FAERS Safety Report 11253529 (Version 1)
Quarter: 2015Q3

REPORT INFORMATION
  Report Type: Spontaneous
  Country: DE (occurrence: DE)
  Receive Date: 20150709
  Receipt Date: 20150709
  Transmission Date: 20151125
  Serious: Yes (Hospitalization)
  Sender: FDA-Public Use
  Company Number: DE-ROCHE-1604028

PATIENT
  Age: 54 Year
  Sex: Male

DRUGS (2)
  1. BRIVUDINE [Interacting]
     Active Substance: BRIVUDINE
     Indication: ORAL HERPES
     Route: 048
     Dates: start: 20150220, end: 20150220
  2. CAPECITABINE. [Suspect]
     Active Substance: CAPECITABINE
     Indication: GASTRIC CANCER
     Route: 048
     Dates: end: 20150225

REACTIONS (3)
  - Drug interaction [Unknown]
  - Pancytopenia [Not Recovered/Not Resolved]
  - Mucosal inflammation [Not Recovered/Not Resolved]

NARRATIVE: CASE EVENT DATE: 20150220
